FAERS Safety Report 17887728 (Version 4)
Quarter: 2020Q3

REPORT INFORMATION
  Report Type: Spontaneous
  Country: US (occurrence: US)
  Receive Date: 20200612
  Receipt Date: 20200710
  Transmission Date: 20201103
  Serious: Yes (Other)
  Sender: FDA-Public Use
  Company Number: US-GILEAD-2020-0469658

PATIENT
  Age: 63 Year
  Sex: Male
  Weight: 86.2 kg

DRUGS (33)
  1. INSULIN LISPRO [Concomitant]
     Active Substance: INSULIN LISPRO
  2. MAGNESIUM HYDROXIDE. [Concomitant]
     Active Substance: MAGNESIUM HYDROXIDE
  3. INSULIN [Concomitant]
     Active Substance: INSULIN NOS
  4. BUMEX [Concomitant]
     Active Substance: BUMETANIDE
  5. TOUJEO [Concomitant]
     Active Substance: INSULIN GLARGINE
  6. TYLENOL [Concomitant]
     Active Substance: ACETAMINOPHEN
  7. BISACODYL. [Concomitant]
     Active Substance: BISACODYL
  8. MORPHINE [Concomitant]
     Active Substance: MORPHINE
  9. ZOFRAN MELT [Concomitant]
  10. LIPITOR [Concomitant]
     Active Substance: ATORVASTATIN CALCIUM
  11. GABAPENTIN. [Concomitant]
     Active Substance: GABAPENTIN
  12. METOPROLOL. [Concomitant]
     Active Substance: METOPROLOL
  13. OXYCODONE [Concomitant]
     Active Substance: OXYCODONE
  14. LOSARTAN. [Concomitant]
     Active Substance: LOSARTAN
  15. PROVENTIL HFA [Concomitant]
     Active Substance: ALBUTEROL SULFATE
  16. VENTOLIN HFA [Concomitant]
     Active Substance: ALBUTEROL SULFATE
  17. HONEY [Concomitant]
     Active Substance: HONEY
  18. REMDESIVIR. [Suspect]
     Active Substance: REMDESIVIR
     Indication: COVID-19
     Dosage: 100 MG, QD
     Route: 042
     Dates: start: 20200528, end: 20200530
  19. ZETIA [Concomitant]
     Active Substance: EZETIMIBE
  20. EZETIMIBE. [Concomitant]
     Active Substance: EZETIMIBE
  21. HEPARIN [Concomitant]
     Active Substance: HEPARIN SODIUM
  22. SYMBICORT [Concomitant]
     Active Substance: BUDESONIDE\FORMOTEROL FUMARATE DIHYDRATE
  23. ASPIRIN (E.C.) [Concomitant]
     Active Substance: ASPIRIN
  24. DEXTROSE. [Concomitant]
     Active Substance: DEXTROSE
  25. DYCLONINE [Concomitant]
     Active Substance: DYCLONINE
  26. MIRTAZAPINE. [Concomitant]
     Active Substance: MIRTAZAPINE
  27. LOVENOX [Concomitant]
     Active Substance: ENOXAPARIN SODIUM
  28. GLIPIZIDE. [Concomitant]
     Active Substance: GLIPIZIDE
  29. ASA [Concomitant]
     Active Substance: ASPIRIN
  30. ALBUTEROL SULFATE. [Concomitant]
     Active Substance: ALBUTEROL SULFATE
  31. COLLAGENASE SANTYL [Concomitant]
     Active Substance: COLLAGENASE CLOSTRIDIUM HISTOLYTICUM
  32. FERROUS SULFATE. [Concomitant]
     Active Substance: FERROUS SULFATE
  33. SODIUM CHLORIDE. [Concomitant]
     Active Substance: SODIUM CHLORIDE

REACTIONS (1)
  - Acute kidney injury [Recovered/Resolved]

NARRATIVE: CASE EVENT DATE: 20200530
